FAERS Safety Report 11935069 (Version 2)
Quarter: 2016Q1

REPORT INFORMATION
  Report Type: Spontaneous
  Country: FI (occurrence: FI)
  Receive Date: 20160121
  Receipt Date: 20160126
  Transmission Date: 20160526
  Serious: Yes (Death)
  Sender: FDA-Public Use
  Company Number: FI-ACTELION-A-CH2016-130157

PATIENT
  Age: 5 Year
  Sex: Female

DRUGS (2)
  1. TRACLEER [Suspect]
     Active Substance: BOSENTAN
     Indication: PULMONARY HYPERTENSION
     Dosage: 32.5 MG, QD
     Route: 048
     Dates: start: 20151209, end: 20151231
  2. SILDENAFIL. [Concomitant]
     Active Substance: SILDENAFIL
     Dosage: UNK
     Dates: start: 20151211

REACTIONS (2)
  - Pulmonary hypertension [Fatal]
  - Biopsy lung [Unknown]
